FAERS Safety Report 25343457 (Version 1)
Quarter: 2025Q2

REPORT INFORMATION
  Report Type: Spontaneous
  Country: US (occurrence: US)
  Receive Date: 20250521
  Receipt Date: 20250521
  Transmission Date: 20250717
  Serious: No
  Sender: TAKEDA
  Company Number: US-TAKEDA-2025TUS046469

PATIENT

DRUGS (1)
  1. TRINTELLIX [Suspect]
     Active Substance: VORTIOXETINE HYDROBROMIDE
     Indication: Mixed anxiety and depressive disorder

REACTIONS (7)
  - Panic attack [Unknown]
  - Feeling of body temperature change [Unknown]
  - Depression [Unknown]
  - Thinking abnormal [Unknown]
  - Crying [Unknown]
  - Chills [Unknown]
  - Vomiting [Unknown]
